FAERS Safety Report 7796116-2 (Version None)
Quarter: 2011Q4

REPORT INFORMATION
  Report Type: 
  Country: None (occurrence: None)
  Receive Date: 20111004
  Receipt Date: 20110927
  Transmission Date: 20120403
  Serious: Yes (Other)
  Sender: FDA-Public Use
  Company Number: US-AMGEN-KDL412905

PATIENT
  Sex: Female
  Weight: 83.9 kg

DRUGS (14)
  1. CALCIUM CARBONATE [Concomitant]
     Dosage: 600 MG, UNK
     Route: 048
  2. ASPIRIN [Concomitant]
     Dosage: 81 MG, QD
     Route: 048
  3. LORAZEPAM [Concomitant]
     Dosage: .5 MG, PRN
  4. DIAZEPAM [Concomitant]
     Dosage: 10 MG, QD
  5. ATORVASTATIN CALCIUM [Concomitant]
     Dosage: 10 MG, QD
     Route: 048
  6. CELEXA [Concomitant]
     Dosage: 40 MG, QD
     Route: 048
  7. CALCITRIOL [Concomitant]
     Dosage: 3 MUG, BID
     Route: 061
  8. ESOMEPRAZOLE MAGNESIUM [Concomitant]
     Dosage: 40 MG, QD
     Route: 048
  9. ENBREL [Suspect]
     Indication: PSORIASIS
  10. ZOLPIDEM TARTRATE [Concomitant]
     Dosage: 10 MG, PRN
     Route: 048
  11. TRIMETHOPRIM + SULFAMETHOXAZOLE [Concomitant]
     Dosage: UNK UNK, BID
     Route: 048
  12. ENBREL [Suspect]
     Indication: PSORIATIC ARTHROPATHY
     Dosage: 50 MG, QWK
     Route: 058
     Dates: start: 20091201, end: 20100701
  13. OXYCODONE/ACETAMINOPHEN [Concomitant]
     Dosage: UNK UNK, PRN
     Route: 048
  14. ALENDRONATE SODIUM [Concomitant]
     Dosage: 70 MG, QWK
     Route: 048

REACTIONS (6)
  - PANCREATIC CYST [None]
  - PANCREATIC NEOPLASM [None]
  - PANCREATIC PSEUDOCYST [None]
  - WEIGHT DECREASED [None]
  - PSORIASIS [None]
  - PSORIATIC ARTHROPATHY [None]
